FAERS Safety Report 9513961 (Version 1)
Quarter: 2013Q3

REPORT INFORMATION
  Report Type: Report from Study
  Country: US (occurrence: US)
  Receive Date: 20130910
  Receipt Date: 20130910
  Transmission Date: 20140515
  Serious: Yes (Other)
  Sender: FDA-Public Use
  Company Number: US-TAKEDA-2013TJP000408

PATIENT
  Sex: Female
  Weight: 101.13 kg

DRUGS (1)
  1. LEUPROLIDE ACETATE [Suspect]
     Indication: ENDOMETRIOSIS
     Dosage: 3.75 MG, MONTHLY
     Dates: start: 20130716

REACTIONS (1)
  - Spinal disorder [Unknown]
